FAERS Safety Report 7822039 (Version 3)
Quarter: 2014Q2

REPORT INFORMATION
  Report Type: Spontaneous
  Country: US (occurrence: US)
  Receive Date: 20110222
  Receipt Date: 20140501
  Transmission Date: 20141212
  Serious: Yes (Other)
  Sender: FDA-Public Use
  Company Number: US-ROCHE-735736

PATIENT
  Age: 15 Year
  Sex: Male
  Weight: 86.2 kg

DRUGS (2)
  1. ACCUTANE [Suspect]
     Indication: ACNE
     Route: 065
  2. ACCUTANE [Suspect]
     Route: 065
     Dates: start: 20000301, end: 20000901

REACTIONS (15)
  - Crohn^s disease [Unknown]
  - Colitis ulcerative [Unknown]
  - Gastrointestinal injury [Unknown]
  - Inflammatory bowel disease [Unknown]
  - Intestinal perforation [Unknown]
  - Haemorrhoids [Unknown]
  - Fistula [Recovering/Resolving]
  - Perirectal abscess [Unknown]
  - Anal fissure [Unknown]
  - Anal abscess [Unknown]
  - Intestinal obstruction [Unknown]
  - Adenoma benign [Unknown]
  - Irritable bowel syndrome [Unknown]
  - Rheumatoid arthritis [Unknown]
  - Visual acuity reduced [Unknown]
